FAERS Safety Report 8812462 (Version 1)
Quarter: 2012Q4

REPORT INFORMATION
  Report Type: 
  Country: BR (occurrence: BR)
  Receive Date: 20120927
  Receipt Date: 20120927
  Transmission Date: 20130627
  Serious: Yes (Hospitalization)
  Sender: FDA-Public Use
  Company Number: BR-009507513-1209BRA010219

PATIENT
  Age: 55 None
  Sex: Male
  Weight: 57 kg

DRUGS (6)
  1. VICTRELIS [Suspect]
     Indication: HEPATITIS C
     Dosage: 800 mg, tid
     Route: 048
     Dates: start: 20120515, end: 20120728
  2. REBETOL [Suspect]
     Indication: HEPATITIS C
     Dosage: UNK, bid
     Route: 048
     Dates: start: 20120508, end: 20120728
  3. PEGASYS [Concomitant]
     Indication: HEPATITIS C
     Dosage: UNK, qw
     Route: 058
     Dates: start: 20120508, end: 20120724
  4. LEVOTHYROXINE SODIUM [Concomitant]
     Indication: AUTOIMMUNE THYROIDITIS
     Dosage: UNK
  5. PANTOPRAZOLE [Concomitant]
     Indication: PROPHYLAXIS
     Dosage: UNK, qd
  6. PROPRANOLOL HYDROCHLORIDE [Concomitant]
     Indication: PORTAL HYPERTENSION
     Dosage: UNK, qd
     Dates: start: 201109

REACTIONS (13)
  - Anaemia [Recovered/Resolved]
  - Ascites [Recovering/Resolving]
  - Abscess [Recovering/Resolving]
  - Confusional state [Recovered/Resolved]
  - Dry mouth [Recovered/Resolved]
  - Speech disorder [Recovered/Resolved]
  - Body temperature decreased [Recovered/Resolved]
  - Asthenia [Recovered/Resolved]
  - Dysstasia [Recovered/Resolved]
  - Eating disorder [Recovered/Resolved]
  - Blood thyroid stimulating hormone decreased [Recovering/Resolving]
  - Oedema peripheral [Recovering/Resolving]
  - Weight decreased [Unknown]
